FAERS Safety Report 8884768 (Version 3)
Quarter: 2012Q4

REPORT INFORMATION
  Report Type: 
  Country: FR (occurrence: FR)
  Receive Date: 20121102
  Receipt Date: 20121126
  Transmission Date: 20130627
  Serious: Yes (Hospitalization)
  Sender: FDA-Public Use
  Company Number: FR-PFIZER INC-2012271408

PATIENT
  Age: 64 Year
  Sex: Male

DRUGS (4)
  1. DALACINE [Suspect]
     Indication: STAPHYLOCOCCUS EPIDERMIDIS INFECTION
     Dosage: 600 mg, 3x/day
     Route: 048
     Dates: start: 20120910, end: 20120924
  2. CEFTRIAXONE [Suspect]
     Indication: STAPHYLOCOCCUS EPIDERMIDIS INFECTION
     Dosage: 2 g, 1x/day
     Route: 042
     Dates: start: 20120905, end: 20120924
  3. DOXYCYCLINE [Suspect]
     Indication: STAPHYLOCOCCUS EPIDERMIDIS INFECTION
     Dosage: 100 mg, 2x/day
     Route: 048
     Dates: start: 20120910, end: 20120924
  4. VANCOMYCIN [Concomitant]
     Indication: STAPHYLOCOCCUS EPIDERMIDIS INFECTION
     Dosage: UNK
     Dates: start: 20120905, end: 20120909

REACTIONS (3)
  - Lymphadenopathy [Unknown]
  - Rash [Recovered/Resolved]
  - Eosinophilia [Recovering/Resolving]
